FAERS Safety Report 19215775 (Version 3)
Quarter: 2021Q2

REPORT INFORMATION
  Report Type: Spontaneous
  Country: US (occurrence: US)
  Receive Date: 20210505
  Receipt Date: 20210524
  Transmission Date: 20210717
  Serious: No
  Sender: FDA-Public Use
  Company Number: US-JNJFOC-20210500800

PATIENT
  Age: 81 Year
  Sex: Female
  Weight: 113.5 kg

DRUGS (1)
  1. TREMFYA [Suspect]
     Active Substance: GUSELKUMAB
     Indication: PSORIASIS
     Route: 058
     Dates: start: 20210309

REACTIONS (5)
  - Incontinence [Unknown]
  - Somnolence [Unknown]
  - Diarrhoea [Not Recovered/Not Resolved]
  - Productive cough [Unknown]
  - Dry mouth [Unknown]

NARRATIVE: CASE EVENT DATE: 2021
